FAERS Safety Report 18172640 (Version 10)
Quarter: 2022Q4

REPORT INFORMATION
  Report Type: Other
  Country: CA (occurrence: None)
  Receive Date: 20200819
  Receipt Date: 20221010
  Transmission Date: 20230113
  Serious: Yes (Hospitalization, Other)
  Sender: FDA-Public Use
  Company Number: CA-ROCHE-2662226

PATIENT
  Age: 42 Year
  Sex: Male

DRUGS (4)
  1. OCREVUS [Suspect]
     Active Substance: OCRELIZUMAB
     Indication: Relapsing-remitting multiple sclerosis
     Dosage: THEN 600 MG EVERY 6 MONTH.
     Route: 042
     Dates: start: 20190318
  2. GABAPENTIN [Concomitant]
     Active Substance: GABAPENTIN
  3. MACROBID [Concomitant]
     Active Substance: NITROFURANTOIN\NITROFURANTOIN MONOHYDRATE
  4. COVID-19 VACCINE [Concomitant]

REACTIONS (7)
  - Urinary tract infection pseudomonal [Not Recovered/Not Resolved]
  - Prostatitis [Not Recovered/Not Resolved]
  - Infection [Unknown]
  - Thermal burn [Recovered/Resolved]
  - Wound [Recovered/Resolved]
  - Mobility decreased [Not Recovered/Not Resolved]
  - Urinary tract infection [Not Recovered/Not Resolved]

NARRATIVE: CASE EVENT DATE: 20200810
